FAERS Safety Report 4892139-1 (Version None)
Quarter: 2006Q1

REPORT INFORMATION
  Report Type: 
  Country: None (occurrence: None)
  Receive Date: 20060126
  Receipt Date: 20060123
  Transmission Date: 20060701
  Serious: Yes (Disabling)
  Sender: FDA-Public Use
  Company Number: 2006SE00438

PATIENT
  Sex: Female
  Weight: 85 kg

DRUGS (4)
  1. BLOPRESS [Suspect]
     Indication: HYPERTENSION
     Route: 048
     Dates: start: 20050727, end: 20051129
  2. FUROSEMIDE [Concomitant]
     Route: 048
     Dates: start: 20050930
  3. OMEPRAZOLE [Concomitant]
     Route: 048
     Dates: start: 19980101
  4. METOPROLOL [Concomitant]
     Route: 048
     Dates: start: 19980101

REACTIONS (1)
  - SKIN NODULE [None]
